FAERS Safety Report 8597606-5 (Version None)
Quarter: 2012Q3

REPORT INFORMATION
  Report Type: 
  Country: None (occurrence: None)
  Receive Date: 20120816
  Receipt Date: 20120810
  Transmission Date: 20120928
  Serious: Yes (Hospitalization)
  Sender: FDA-Public Use
  Company Number: GR-AMGEN-GRCCT2012050759

PATIENT
  Age: 58 Year
  Sex: Male
  Weight: 79 kg

DRUGS (13)
  1. OXALIPLATIN [Concomitant]
     Indication: COLORECTAL CANCER METASTATIC
     Dosage: 250 MG, Q3WK
     Route: 042
     Dates: start: 20120525
  2. NAPROSYN [Concomitant]
     Indication: PYREXIA
     Dosage: 500 MG, BID
     Route: 048
     Dates: start: 20120615
  3. PANITUMUMAB [Suspect]
     Indication: COLORECTAL CANCER METASTATIC
     Dosage: 711 MG, Q3WK
     Route: 042
     Dates: start: 20120525
  4. ALFUZOSIN HYDROCHLORIDE [Concomitant]
     Indication: BENIGN PROSTATIC HYPERPLASIA
     Dosage: 2.5 MG, UNK
     Route: 048
     Dates: start: 20090101
  5. LEGOFER [Concomitant]
     Indication: ANAEMIA
     Dosage: 500 MG, BID
     Route: 048
     Dates: start: 20120515
  6. ZOFRAN [Concomitant]
     Indication: PROPHYLAXIS
     Dosage: UNK
     Dates: start: 20120526, end: 20120527
  7. ARANESP [Concomitant]
     Indication: ANAEMIA
     Dosage: 500 MUG, Q3WK
     Route: 058
     Dates: start: 20120616
  8. CLINDAMYCIN HCL [Concomitant]
     Indication: RASH
     Dosage: UNK UNK, QD
     Dates: start: 20120710
  9. CAPECITABINE [Concomitant]
     Indication: COLORECTAL CANCER METASTATIC
     Dosage: 4000 MG, QD
     Route: 048
     Dates: start: 20120525
  10. SOLDESANIL [Concomitant]
     Indication: PROPHYLAXIS
     Dosage: UNK
     Dates: start: 20120526, end: 20120528
  11. TENORMIN [Concomitant]
     Indication: HYPERTENSION
     Dosage: 50 MG, QD
     Route: 048
     Dates: start: 20070101
  12. FUCICORT [Concomitant]
     Indication: RASH
     Dosage: UNK
     Dates: start: 20120710
  13. BLOOD BUILDER [Concomitant]
     Indication: ANAEMIA
     Dosage: UNK
     Dates: start: 20120504, end: 20120504

REACTIONS (1)
  - INTESTINAL PERFORATION [None]
